FAERS Safety Report 21972729 (Version 9)
Quarter: 2023Q4

REPORT INFORMATION
  Report Type: Spontaneous
  Country: US (occurrence: US)
  Receive Date: 20230209
  Receipt Date: 20231222
  Transmission Date: 20240110
  Serious: Yes (Disabling, Other)
  Sender: FDA-Public Use
  Company Number: US-PFIZER INC-PV202300025035

PATIENT
  Age: 70 Year
  Sex: Female
  Weight: 79.819 kg

DRUGS (2)
  1. PREMARIN [Suspect]
     Active Substance: ESTROGENS, CONJUGATED
     Indication: Hormone replacement therapy
     Dosage: UNK (TAKING ONE AND SKIPPING, LIKE, 2 DAYS AND THEN TAKE IT, YOU KNOW, THE 4TH DAY)
     Dates: start: 1987
  2. PREMARIN [Suspect]
     Active Substance: ESTROGENS, CONJUGATED
     Indication: Hot flush
     Dosage: 0.625MG BURGUNDY TABLE, ONCE A DAY BY MOUTH
     Route: 048
     Dates: end: 20231207

REACTIONS (15)
  - Hyperhidrosis [Unknown]
  - Hot flush [Unknown]
  - Fibromyalgia [Recovered/Resolved]
  - Pruritus [Recovered/Resolved]
  - Scratch [Recovered/Resolved]
  - Contusion [Unknown]
  - Irritability [Unknown]
  - Fall [Unknown]
  - COVID-19 [Unknown]
  - Fatigue [Recovered/Resolved]
  - Vomiting [Recovered/Resolved]
  - Cough [Recovered/Resolved]
  - Malaise [Recovered/Resolved]
  - Facial pain [Recovered/Resolved]
  - Intentional product misuse [Unknown]

NARRATIVE: CASE EVENT DATE: 20010101
